FAERS Safety Report 5347117-5 (Version None)
Quarter: 2007Q2

REPORT INFORMATION
  Report Type: 
  Country: None (occurrence: None)
  Receive Date: 20070604
  Receipt Date: 20070521
  Transmission Date: 20071010
  Serious: Yes (Other)
  Sender: FDA-Public Use
  Company Number: GXBR2007US01101

PATIENT
  Age: 56 Year
  Sex: Male
  Weight: 157.8 kg

DRUGS (4)
  1. INDOMETHACIN [Suspect]
     Indication: OSTEOARTHRITIS
     Dosage: 75 MG, BID, ORAL
     Route: 048
     Dates: end: 20061129
  2. METFORMIN HCL [Suspect]
     Indication: DIABETES MELLITUS
     Dosage: 500 MG, Q12H, ORAL
     Route: 048
     Dates: start: 20060201, end: 20061129
  3. LISINOPRIL/HCTZ (HYDROCHLOROTHIAZIDE, LISINOPRIL) [Concomitant]
  4. FUROSEMIDE [Concomitant]

REACTIONS (3)
  - DRUG INTERACTION [None]
  - RENAL DISORDER [None]
  - RENAL IMPAIRMENT [None]
